FAERS Safety Report 5400194-5 (Version None)
Quarter: 2007Q3

REPORT INFORMATION
  Report Type: 
  Country: None (occurrence: None)
  Receive Date: 20070730
  Receipt Date: 20070724
  Transmission Date: 20080115
  Serious: Yes (Other)
  Sender: FDA-Public Use
  Company Number: JP-AVENTIS-200711986JP

PATIENT

DRUGS (1)
  1. LASIX [Suspect]
     Route: 042

REACTIONS (3)
  - LOSS OF CONSCIOUSNESS [None]
  - PLATELET COUNT DECREASED [None]
  - WHITE BLOOD CELL COUNT DECREASED [None]
